FAERS Safety Report 6690426-8 (Version None)
Quarter: 2010Q2

REPORT INFORMATION
  Report Type: 
  Country: None (occurrence: None)
  Receive Date: 20100421
  Receipt Date: 20090216
  Transmission Date: 20101027
  Serious: No
  Sender: FDA-Public Use
  Company Number: US-ASTRAZENECA-2009UW04407

PATIENT
  Age: 79 Year
  Sex: Male
  Weight: 90.7 kg

DRUGS (5)
  1. CASODEX [Suspect]
     Indication: PROSTATE CANCER
     Dosage: DAILY
     Route: 048
     Dates: start: 20080201
  2. VYTORIN [Concomitant]
  3. CITRACAL [Concomitant]
  4. ORACIT [Concomitant]
  5. ECTOLAC [Concomitant]

REACTIONS (3)
  - BACK DISORDER [None]
  - BACK PAIN [None]
  - PROSTATIC SPECIFIC ANTIGEN INCREASED [None]
